FAERS Safety Report 10086805 (Version 3)
Quarter: 2014Q2

REPORT INFORMATION
  Report Type: Spontaneous
  Country: US (occurrence: US)
  Receive Date: 20140418
  Receipt Date: 20140604
  Transmission Date: 20141212
  Serious: Yes (Hospitalization, Disabling)
  Sender: FDA-Public Use
  Company Number: US-GLAXOSMITHKLINE-A1069282A

PATIENT
  Age: 63 Year
  Sex: Male

DRUGS (11)
  1. ADVAIR HFA [Suspect]
     Indication: ASTHMA
     Dosage: 1PUFF TWICE PER DAY
     Route: 055
     Dates: start: 2012
  2. FLOVENT [Suspect]
     Indication: ASTHMA
     Dosage: 2PUFF TWICE PER DAY
     Route: 055
     Dates: start: 2007, end: 2012
  3. XANAX [Concomitant]
  4. OXYCODONE [Concomitant]
  5. FLOMAX [Concomitant]
  6. ZOLOFT [Concomitant]
  7. ASPIRIN [Concomitant]
  8. PLAVIX [Concomitant]
  9. RANEXA [Concomitant]
  10. IBUPROFEN [Concomitant]
  11. SYMBICORT [Concomitant]

REACTIONS (7)
  - Dyspnoea [Recovering/Resolving]
  - Hyperhidrosis [Recovering/Resolving]
  - Panic reaction [Recovering/Resolving]
  - Drug ineffective [Unknown]
  - Product quality issue [Unknown]
  - Extra dose administered [Unknown]
  - Drug administration error [Unknown]
